FAERS Safety Report 18645061 (Version 1)
Quarter: 2020Q4

REPORT INFORMATION
  Report Type: Spontaneous
  Country: US (occurrence: US)
  Receive Date: 20201221
  Receipt Date: 20201221
  Transmission Date: 20210114
  Serious: No
  Sender: FDA-Public Use
  Company Number: US-PFIZER INC-2020500580

PATIENT
  Sex: Male

DRUGS (2)
  1. MOTRIN [Interacting]
     Active Substance: IBUPROFEN
     Dosage: 1000 MG
  2. VIAGRA [Suspect]
     Active Substance: SILDENAFIL CITRATE
     Dosage: 100 MG

REACTIONS (2)
  - Drug interaction [Unknown]
  - Dysuria [Unknown]
